FAERS Safety Report 9971515 (Version 1)
Quarter: 2014Q1

REPORT INFORMATION
  Report Type: Spontaneous
  Country: US (occurrence: None)
  Receive Date: 20140304
  Receipt Date: 20140304
  Transmission Date: 20141002
  Serious: Yes (Other)
  Sender: FDA-Public Use
  Company Number: ADR-2014-00324

PATIENT
  Age: 60 Year
  Sex: Female

DRUGS (3)
  1. BACLOFEN [Suspect]
     Indication: PAIN
     Dosage: SEE B5
  2. MORPHINE [Suspect]
     Indication: PAIN
     Dosage: SEE B5
  3. FENTANYL [Suspect]
     Dosage: 19.457 MCG/DAY (CONCENTRATION NOT SPECIFIED)

REACTIONS (3)
  - Drug ineffective [None]
  - Withdrawal syndrome [None]
  - Dystonia [None]
